FAERS Safety Report 8263827-4 (Version None)
Quarter: 2012Q2

REPORT INFORMATION
  Report Type: 
  Country: None (occurrence: None)
  Receive Date: 20120405
  Receipt Date: 20120328
  Transmission Date: 20120825
  Serious: Yes (Hospitalization, Other)
  Sender: FDA-Public Use
  Company Number: CH-MERCK-1203USA03918

PATIENT
  Age: 21 Year
  Sex: Female

DRUGS (11)
  1. ACETAMINOPHEN AND CAFFEINE AND CHLORPHENIRAMINE MALEATE [Suspect]
     Dosage: 550/50/4
     Route: 048
     Dates: start: 20110617, end: 20110617
  2. CETYLPYRIDINIUM CHLORIDE AND LIDOCAINE HYDROCHLORIDE AND MENTHOL [Suspect]
     Route: 065
  3. IBUPROFEN [Suspect]
     Route: 048
  4. IBUPROFEN [Suspect]
     Route: 048
  5. TONOPAN [Suspect]
     Route: 065
  6. NOROXIN [Suspect]
     Dosage: 13 DOSAGE FORMS
     Route: 048
     Dates: start: 20110617, end: 20110617
  7. IMODIUM [Suspect]
     Route: 048
  8. ACETAMINOPHEN [Suspect]
     Route: 048
     Dates: start: 20110617, end: 20110617
  9. DEXTROMETHORPHAN HYDROBROMIDE [Suspect]
     Route: 048
     Dates: start: 20110617, end: 20110617
  10. DIPYRONE TAB [Suspect]
     Route: 048
  11. ZYRTEC [Suspect]
     Route: 048

REACTIONS (6)
  - TACHYCARDIA [None]
  - SUICIDE ATTEMPT [None]
  - NAUSEA [None]
  - OVERDOSE [None]
  - VOMITING [None]
  - SOMNOLENCE [None]
